FAERS Safety Report 5746713-0 (Version None)
Quarter: 2008Q2

REPORT INFORMATION
  Report Type: 
  Country: None (occurrence: None)
  Receive Date: 20080520
  Receipt Date: 20080508
  Transmission Date: 20081010
  Serious: Yes (Hospitalization)
  Sender: FDA-Public Use
  Company Number: UKP08000086

PATIENT
  Sex: Female

DRUGS (1)
  1. ACTONEL [Suspect]
     Dates: start: 20040101, end: 20070901

REACTIONS (8)
  - ATRIAL FIBRILLATION [None]
  - HEART RATE IRREGULAR [None]
  - IMPAIRED HEALING [None]
  - MOBILITY DECREASED [None]
  - MUSCULOSKELETAL PAIN [None]
  - NERVOUS SYSTEM DISORDER [None]
  - TOOTH FRACTURE [None]
  - WEIGHT DECREASED [None]
